FAERS Safety Report 6457220-4 (Version None)
Quarter: 2009Q4

REPORT INFORMATION
  Report Type: 
  Country: None (occurrence: None)
  Receive Date: 20091125
  Receipt Date: 20091120
  Transmission Date: 20100525
  Serious: Yes (Life-Threatening, Hospitalization, Other)
  Sender: FDA-Public Use
  Company Number: US-ELI_LILLY_AND_COMPANY-US200911005828

PATIENT
  Sex: Female

DRUGS (2)
  1. EXENATIDE [Suspect]
     Dosage: UNK, UNKNOWN
     Route: 065
     Dates: start: 20070220, end: 20070426
  2. SYNTHROID [Concomitant]
     Dosage: UNK, UNKNOWN
     Route: 065

REACTIONS (20)
  - ABDOMINAL PAIN [None]
  - ACUTE RESPIRATORY DISTRESS SYNDROME [None]
  - ANAEMIA [None]
  - CHILLS [None]
  - CLOSTRIDIUM DIFFICILE COLITIS [None]
  - DEEP VEIN THROMBOSIS [None]
  - HYPERCALCAEMIA [None]
  - HYPERTRIGLYCERIDAEMIA [None]
  - NAUSEA [None]
  - PANCREATITIS ACUTE [None]
  - PULMONARY OEDEMA [None]
  - PYREXIA [None]
  - RASH [None]
  - RESPIRATORY DISTRESS [None]
  - RESPIRATORY FAILURE [None]
  - RETROPERITONEAL EFFUSION [None]
  - SEPSIS [None]
  - TACHYCARDIA [None]
  - VOMITING [None]
  - XANTHOMA [None]
